FAERS Safety Report 24966656 (Version 1)
Quarter: 2025Q1

REPORT INFORMATION
  Report Type: Spontaneous
  Country: FR (occurrence: FR)
  Receive Date: 20250213
  Receipt Date: 20250213
  Transmission Date: 20250408
  Serious: Yes (Hospitalization)
  Sender: TEVA
  Company Number: None

PATIENT
  Age: 83 Year
  Sex: Male
  Weight: 68.4 kg

DRUGS (3)
  1. SPIRONOLACTONE [Suspect]
     Active Substance: SPIRONOLACTONE
     Indication: Hypertension
     Route: 048
     Dates: start: 202411, end: 20241223
  2. INFLUVAC TETRA [Suspect]
     Active Substance: INFLUENZA VIRUS VACCINE QUADRIVALENT TYPE A+B
     Indication: Antiviral prophylaxis
     Route: 030
     Dates: start: 20241209, end: 20241209
  3. ALTHIAZIDE [Suspect]
     Active Substance: ALTHIAZIDE
     Indication: Hypertension
     Route: 048
     Dates: start: 202411, end: 20241223

REACTIONS (1)
  - Cutaneous vasculitis [Recovering/Resolving]

NARRATIVE: CASE EVENT DATE: 20241201
